FAERS Safety Report 18591225 (Version 2)
Quarter: 2021Q1

REPORT INFORMATION
  Report Type: Spontaneous
  Country: BE (occurrence: BE)
  Receive Date: 20201208
  Receipt Date: 20210113
  Transmission Date: 20210419
  Serious: Yes (Hospitalization)
  Sender: FDA-Public Use
  Company Number: BE-PFIZER INC-2020476537

PATIENT
  Age: 13 Year
  Sex: Female

DRUGS (4)
  1. METHOTREXATE SODIUM. [Suspect]
     Active Substance: METHOTREXATE SODIUM
     Indication: ACUTE LYMPHOCYTIC LEUKAEMIA
     Dosage: 12 MG (INTRATHECAL (IT) CHEMOTHERAPY)
     Route: 037
  2. SOLU?MEDROL [Concomitant]
     Active Substance: METHYLPREDNISOLONE SODIUM SUCCINATE
     Indication: ACUTE LYMPHOCYTIC LEUKAEMIA
     Dosage: 30 MG (INTRATHECAL (IT) CHEMOTHERAPY)
     Route: 037
  3. ARACYTINE [Suspect]
     Active Substance: CYTARABINE
     Indication: ACUTE LYMPHOCYTIC LEUKAEMIA
     Dosage: 15 MG (INTRATHECAL (IT) CHEMOTHERAPY)
     Route: 037
  4. VITAMIN?B COMPLEX [Concomitant]
     Dosage: UNK

REACTIONS (1)
  - Myelopathy [Unknown]
